FAERS Safety Report 6574888-2 (Version None)
Quarter: 2010Q1

REPORT INFORMATION
  Report Type: 
  Country: None (occurrence: None)
  Receive Date: 20100209
  Receipt Date: 20100129
  Transmission Date: 20100710
  Serious: Yes (Other)
  Sender: FDA-Public Use
  Company Number: PHHY2010GB06007

PATIENT
  Sex: Female

DRUGS (2)
  1. CLOZARIL [Suspect]
     Indication: SCHIZOPHRENIA
     Dosage: UNK
     Dates: start: 20090605
  2. METHADONE HCL [Concomitant]

REACTIONS (4)
  - CONSTIPATION [None]
  - CONVULSION [None]
  - HEPATITIS C [None]
  - SALIVARY HYPERSECRETION [None]
